FAERS Safety Report 17822450 (Version 1)
Quarter: 2020Q2

REPORT INFORMATION
  Report Type: Other
  Country: TR (occurrence: TR)
  Receive Date: 20200526
  Receipt Date: 20200526
  Transmission Date: 20200714
  Serious: Yes (Life-Threatening, Hospitalization, Other)
  Sender: FDA-Public Use
  Company Number: TR-DENTSPLY-2020SCDP000179

PATIENT
  Age: 36 Year
  Sex: Female

DRUGS (4)
  1. SODIUM CHLORIDE 0.9% [Concomitant]
     Active Substance: SODIUM CHLORIDE
     Dosage: 100CC / H OF 0.9% NACL SOLUTION
  2. LIDOCAINE HCL [Suspect]
     Active Substance: LIDOCAINE HYDROCHLORIDE
     Indication: ANAESTHESIA
     Dosage: 5 MILLILITER, TOTAL, APPLIED TRANSNASAL ESOPHAGOSCOPY (TNE) WITH 27 G, 1.5 INCH (GERMANY) DENTAL NEE
  3. POVIDONE-IODINE. [Concomitant]
     Active Substance: POVIDONE-IODINE
     Indication: STERILISATION
     Dosage: UNK
  4. SODIUM CHLORIDE 0.9% [Concomitant]
     Active Substance: SODIUM CHLORIDE
     Indication: PRODUCT USED FOR UNKNOWN INDICATION
     Dosage: 5 MILLILITER, TOTAL, TRANSNASAL ESOPHAGOSCOPY (TNE) WITH 27 G, 1.5 INCH (GERMANY) DENTAL NEEDLE WITH

REACTIONS (4)
  - Bradycardia [Recovered/Resolved]
  - Syncope [Recovered/Resolved]
  - Cardiac arrest [Recovered/Resolved]
  - Hypotension [Recovered/Resolved]
